FAERS Safety Report 7508611-1 (Version None)
Quarter: 2011Q2

REPORT INFORMATION
  Report Type: 
  Country: None (occurrence: None)
  Receive Date: 20110527
  Receipt Date: 20110118
  Transmission Date: 20111010
  Serious: No
  Sender: FDA-Public Use
  Company Number: A0908175A

PATIENT
  Sex: Female

DRUGS (7)
  1. FLOLAN [Suspect]
     Route: 042
  2. TRACLEER [Concomitant]
  3. MORPHINE [Concomitant]
  4. SILDENAFIL CITRATE [Concomitant]
  5. CLONIDINE [Concomitant]
  6. DIGOXIN [Concomitant]
  7. LASIX [Concomitant]

REACTIONS (1)
  - SKIN DISCOLOURATION [None]
